FAERS Safety Report 4851908-4 (Version None)
Quarter: 2005Q4

REPORT INFORMATION
  Report Type: 
  Country: None (occurrence: None)
  Receive Date: 20051209
  Receipt Date: 20051125
  Transmission Date: 20060501
  Serious: Yes (Life-Threatening, Hospitalization)
  Sender: FDA-Public Use
  Company Number: SUSI-2005-00849

PATIENT
  Age: 71 Year
  Sex: Male

DRUGS (7)
  1. PROAMATINE [Suspect]
     Indication: ORTHOSTATIC HYPOTENSION
     Dosage: 7.5 MG DAILY, ORAL
     Route: 048
     Dates: start: 20050901, end: 20051003
  2. PROAMATINE [Suspect]
     Indication: ORTHOSTATIC HYPOTENSION
     Dosage: 7.5 MG DAILY, ORAL
     Route: 048
     Dates: start: 20030630
  3. TEGRETOL [Concomitant]
  4. MORPHINE SULFATE [Concomitant]
  5. EFFEXOR [Concomitant]
  6. FLUDROCORTISONE ACETATE [Concomitant]
  7. GABAPENTIN [Concomitant]

REACTIONS (2)
  - CEREBROVASCULAR ACCIDENT [None]
  - CONSTIPATION [None]
